FAERS Safety Report 25753946 (Version 3)
Quarter: 2025Q4

REPORT INFORMATION
  Report Type: Spontaneous
  Country: US (occurrence: US)
  Receive Date: 20250903
  Receipt Date: 20251124
  Transmission Date: 20260118
  Serious: Yes (Other)
  Sender: BAYER HEALTHCARE PHARMACEUTICALS INC.
  Company Number: US-BAYER-2025A112919

PATIENT
  Age: 53 Year
  Sex: Male

DRUGS (7)
  1. JIVI [Suspect]
     Active Substance: DAMOCTOCOG ALFA PEGOL
     Indication: Factor VIII deficiency
     Dosage: 5300 U, BIW, JIVI 2000 IU: INFUSE~5300 UNITS
     Route: 042
     Dates: start: 202303
  2. JIVI [Suspect]
     Active Substance: DAMOCTOCOG ALFA PEGOL
     Indication: Prophylaxis
     Dosage: 5300 U, BIW, JIVI 3000 IU: INFUSE~5300 UNITS
     Route: 042
     Dates: start: 202303
  3. JIVI [Suspect]
     Active Substance: DAMOCTOCOG ALFA PEGOL
     Indication: Factor VIII deficiency
     Dosage: ONE PROPHY, JIVI 3000 IU: INFUSE~5300 UNITS
     Route: 042
  4. JIVI [Suspect]
     Active Substance: DAMOCTOCOG ALFA PEGOL
     Indication: Factor VIII deficiency
     Dosage: JIVI 3000 IU: INFUSE~5300 UNITS
     Route: 042
  5. JIVI [Suspect]
     Active Substance: DAMOCTOCOG ALFA PEGOL
     Indication: Factor VIII deficiency
     Dosage: 3000 U, BIW, JIVI 3000 IU: INFUSE~3000 UNITS
     Route: 042
     Dates: start: 202303
  6. JIVI [Suspect]
     Active Substance: DAMOCTOCOG ALFA PEGOL
     Indication: Factor VIII deficiency
     Dosage: 2300 U, BIW, JIVI 2000 IU: INFUSE~2300 UNITS
     Route: 042
     Dates: start: 202303
  7. JIVI [Suspect]
     Active Substance: DAMOCTOCOG ALFA PEGOL
     Indication: Factor VIII deficiency
     Dosage: 1 DF
     Route: 042
     Dates: start: 20251010, end: 20251010

REACTIONS (4)
  - Haemarthrosis [Recovered/Resolved]
  - Contusion [None]
  - Haemarthrosis [None]
  - Contusion [None]

NARRATIVE: CASE EVENT DATE: 20250730
